FAERS Safety Report 9658042 (Version 1)
Quarter: 2013Q4

REPORT INFORMATION
  Report Type: Spontaneous
  Country: CZ (occurrence: CZ)
  Receive Date: 20131030
  Receipt Date: 20131030
  Transmission Date: 20140711
  Serious: Yes (Hospitalization)
  Sender: FDA-Public Use
  Company Number: CZ-ACTAVIS-2013-19495

PATIENT
  Age: 41 Year
  Sex: Female

DRUGS (2)
  1. RISPERIDONE (UNKNOWN) [Suspect]
     Indication: PERSONALITY DISORDER
     Dosage: 7 MG, DAILY
     Route: 048
  2. OLANZAPINE (UNKNOWN) [Suspect]
     Indication: PERSONALITY DISORDER
     Dosage: 20 MG, DAILY
     Route: 065

REACTIONS (3)
  - Psychiatric decompensation [Recovered/Resolved]
  - Antipsychotic drug level decreased [Unknown]
  - Antipsychotic drug level increased [Unknown]
